FAERS Safety Report 11574450 (Version 4)
Quarter: 2017Q3

REPORT INFORMATION
  Report Type: Spontaneous
  Country: IT (occurrence: IT)
  Receive Date: 20150930
  Receipt Date: 20170707
  Transmission Date: 20171127
  Serious: Yes (Death, Hospitalization, Other)
  Sender: FDA-Public Use
  Company Number: IT-AUROBINDO-AUR-APL-2015-08678

PATIENT

DRUGS (5)
  1. CLARITHROMYCIN. [Suspect]
     Active Substance: CLARITHROMYCIN
     Indication: PRODUCT USED FOR UNKNOWN INDICATION
     Dosage: UNK
     Route: 065
  2. PREDNISONE. [Suspect]
     Active Substance: PREDNISONE
     Indication: PRODUCT USED FOR UNKNOWN INDICATION
     Dosage: 1 MG/KG, UNK
     Route: 065
  3. AMOXICILLIN. [Suspect]
     Active Substance: AMOXICILLIN
     Dosage: 1G ORALLY B.I.D
     Route: 048
  4. IMMUNOGLOBULIN IV [Suspect]
     Active Substance: HUMAN IMMUNOGLOBULIN G
     Indication: PRODUCT USED FOR UNKNOWN INDICATION
     Dosage: 0.75 G, UNK
     Route: 042
  5. AMOXICILLIN. [Suspect]
     Active Substance: AMOXICILLIN
     Indication: UPPER RESPIRATORY TRACT INFECTION
     Dosage: 1 G, TWO TIMES A DAY
     Route: 048

REACTIONS (17)
  - Multiple organ dysfunction syndrome [Fatal]
  - Faecal vomiting [Unknown]
  - Intestinal infarction [Unknown]
  - Electrolyte imbalance [Unknown]
  - Astringent therapy [Unknown]
  - Pyrexia [Unknown]
  - Skin lesion [Unknown]
  - Toxic epidermal necrolysis [Not Recovered/Not Resolved]
  - Rash erythematous [Unknown]
  - Macule [Unknown]
  - Tachycardia [Unknown]
  - Oedema mucosal [Unknown]
  - Gastrointestinal necrosis [Unknown]
  - Abdominal pain [Unknown]
  - Gastrointestinal oedema [Unknown]
  - Renal impairment [Unknown]
  - General physical health deterioration [Unknown]

NARRATIVE: CASE EVENT DATE: 20110201
